FAERS Safety Report 23642462 (Version 2)
Quarter: 2025Q1

REPORT INFORMATION
  Report Type: Spontaneous
  Country: US (occurrence: US)
  Receive Date: 20240318
  Receipt Date: 20250226
  Transmission Date: 20250408
  Serious: No
  Sender: BIOGEN
  Company Number: US-BIOGEN-2022BI01132371

PATIENT
  Age: 47 Year
  Sex: Female

DRUGS (4)
  1. VUMERITY [Suspect]
     Active Substance: DIROXIMEL FUMARATE
     Indication: Multiple sclerosis
     Dosage: 231 MG TWICE A DAY, ORALLY, FOR 7 DAYS, THEN MAINTENANCE DOSE: 462 MG (ADMINISTERED AS TWO 231 MG...
     Route: 050
     Dates: start: 20210304, end: 20210310
  2. VUMERITY [Suspect]
     Active Substance: DIROXIMEL FUMARATE
     Dosage: 231 MG TWICE A DAY, ORALLY, FOR 7 DAYS, THEN MAINTENANCE DOSE: 462 MG (ADMINISTERED AS TWO 231 MG...
     Route: 050
     Dates: start: 20210311
  3. VUMERITY [Suspect]
     Active Substance: DIROXIMEL FUMARATE
     Route: 050
     Dates: start: 202110
  4. VUMERITY [Suspect]
     Active Substance: DIROXIMEL FUMARATE
     Route: 050

REACTIONS (2)
  - Prescribed underdose [Not Recovered/Not Resolved]
  - Blood test abnormal [Recovered/Resolved]

NARRATIVE: CASE EVENT DATE: 20211001
